FAERS Safety Report 20466534 (Version 1)
Quarter: 2022Q1

REPORT INFORMATION
  Report Type: Spontaneous
  Country: US (occurrence: US)
  Receive Date: 20220213
  Receipt Date: 20220213
  Transmission Date: 20220423
  Serious: Yes (Other)
  Sender: FDA-Public Use
  Company Number: US-LUNDBECK-DKLU3044195

PATIENT
  Age: 13 Year
  Sex: Female

DRUGS (2)
  1. SABRIL [Suspect]
     Active Substance: VIGABATRIN
     Indication: Lennox-Gastaut syndrome
     Dosage: OVERDOSE: 2500MG DAILY
     Route: 048
     Dates: start: 201603
  2. SABRIL [Suspect]
     Active Substance: VIGABATRIN
     Dosage: OVERDOSE: 2500MG DAILY
     Route: 048
     Dates: start: 201603

REACTIONS (2)
  - Pneumonia [Not Recovered/Not Resolved]
  - Prescribed overdose [Unknown]

NARRATIVE: CASE EVENT DATE: 20220208
